FAERS Safety Report 4342822-1 (Version None)
Quarter: 2004Q2

REPORT INFORMATION
  Report Type: 
  Country: None (occurrence: None)
  Receive Date: 20040416
  Receipt Date: 20040406
  Transmission Date: 20050107
  Serious: Yes (Death)
  Sender: FDA-Public Use
  Company Number: GBR-2004-0000976

PATIENT
  Age: 26 Year
  Sex: Male

DRUGS (3)
  1. OXYCODONE HCL [Suspect]
  2. ALCOHOL (ETHANOL) [Suspect]
  3. AMPHETAMINE SULFATE TAB [Suspect]

REACTIONS (4)
  - ALCOHOL USE [None]
  - ASPIRATION [None]
  - DRUG ABUSER [None]
  - MULTIPLE DRUG OVERDOSE [None]
